FAERS Safety Report 18079618 (Version 1)
Quarter: 2020Q3

REPORT INFORMATION
  Report Type: Spontaneous
  Country: US (occurrence: US)
  Receive Date: 20200728
  Receipt Date: 20200728
  Transmission Date: 20201103
  Serious: No
  Sender: FDA-Public Use
  Company Number: US-ALLERGAN-2015130US

PATIENT
  Sex: Female

DRUGS (1)
  1. MORPHINE SULFATE UNK [Suspect]
     Active Substance: MORPHINE SULFATE
     Indication: PRODUCT USED FOR UNKNOWN INDICATION

REACTIONS (6)
  - Condition aggravated [Unknown]
  - Feeling abnormal [Unknown]
  - Therapy cessation [Unknown]
  - Impaired gastric emptying [Unknown]
  - Headache [Unknown]
  - Withdrawal syndrome [Unknown]
